FAERS Safety Report 7900623-9 (Version None)
Quarter: 2011Q4

REPORT INFORMATION
  Report Type: 
  Country: None (occurrence: None)
  Receive Date: 20111108
  Receipt Date: 20111025
  Transmission Date: 20120403
  Serious: Yes (Other)
  Sender: FDA-Public Use
  Company Number: US-CELGENEUS-163-21880-11092679

PATIENT
  Sex: Male
  Weight: 94.296 kg

DRUGS (11)
  1. REVLIMID [Suspect]
     Dosage: 2.5 MILLIGRAM
     Route: 048
     Dates: start: 20110429, end: 20110823
  2. ALLOPURINOL [Concomitant]
     Dosage: 100 MILLIGRAM
     Route: 065
  3. BENZONATATE [Concomitant]
     Dosage: 200 MILLIGRAM
     Route: 065
  4. HYDROCHLOROTHIAZIDE [Concomitant]
     Dosage: 12.5 MILLIGRAM
     Route: 065
  5. RITUXAN [Suspect]
     Indication: NON-HODGKIN'S LYMPHOMA
     Dosage: 870 MILLIGRAM
     Route: 041
     Dates: start: 20110414, end: 20110505
  6. LISINOPRIL [Concomitant]
     Dosage: 20 MILLIGRAM
     Route: 065
  7. TOPROL-XL [Concomitant]
     Dosage: 50 MILLIGRAM
     Route: 065
  8. TAMSULOSIN HCL [Concomitant]
     Dosage: .4 MILLIGRAM
     Route: 065
  9. REVLIMID [Suspect]
     Indication: NON-HODGKIN'S LYMPHOMA
     Dosage: 10 MILLIGRAM
     Route: 048
     Dates: start: 20110207
  10. ASPIRIN [Concomitant]
     Indication: ANTICOAGULANT THERAPY
     Dosage: 325 MILLIGRAM
     Route: 065
  11. FILGRASTIM [Concomitant]
     Dosage: 480 MICROGRAM
     Route: 065

REACTIONS (1)
  - ACUTE MYELOID LEUKAEMIA [None]
